FAERS Safety Report 18755697 (Version 1)
Quarter: 2021Q1

REPORT INFORMATION
  Report Type: Spontaneous
  Country: US (occurrence: US)
  Receive Date: 20210118
  Receipt Date: 20210118
  Transmission Date: 20210419
  Serious: No
  Sender: FDA-Public Use
  Company Number: None

PATIENT
  Age: 69 Year
  Sex: Male
  Weight: 94.5 kg

DRUGS (9)
  1. CIALIS [Concomitant]
     Active Substance: TADALAFIL
  2. OMPROZOLE [Concomitant]
  3. LEVEOTHYROXIN [Concomitant]
  4. LOSARTAN HCLTHIAZID TEVA [Concomitant]
     Active Substance: HYDROCHLOROTHIAZIDE\LOSARTAN POTASSIUM
  5. BAMLANIVIMAB. [Suspect]
     Active Substance: BAMLANIVIMAB
     Indication: COVID-19 TREATMENT
  6. METOPROPOL [Concomitant]
  7. ALEVE [Concomitant]
     Active Substance: NAPROXEN SODIUM
  8. TUMERIC [Concomitant]
     Active Substance: HERBALS\TURMERIC
  9. AMOLDIPINE BESYLATE 5MG LEGACY PHARMACEUTICAL [Concomitant]
     Active Substance: AMLODIPINE BESYLATE

REACTIONS (3)
  - Hangover [None]
  - Pain [None]
  - Headache [None]

NARRATIVE: CASE EVENT DATE: 20210116
